FAERS Safety Report 19423910 (Version 2)
Quarter: 2024Q1

REPORT INFORMATION
  Report Type: Report from Study
  Country: FR (occurrence: FR)
  Receive Date: 20210616
  Receipt Date: 20240325
  Transmission Date: 20240409
  Serious: Yes (Hospitalization, Other)
  Sender: FDA-Public Use
  Company Number: FR-NOVARTISPH-NVSC2021FR130823

PATIENT
  Age: 78 Year
  Sex: Female
  Weight: 55 kg

DRUGS (11)
  1. FEMARA [Suspect]
     Active Substance: LETROZOLE
     Indication: Breast cancer metastatic
     Dosage: 2.5 MG, QD
     Route: 048
     Dates: start: 20170901, end: 20210427
  2. IBRANCE [Suspect]
     Active Substance: PALBOCICLIB
     Indication: Breast cancer metastatic
     Dosage: 125 MG, QD, (3 WEEKS OUT OF 4)
     Route: 048
     Dates: start: 20170804
  3. IBRANCE [Suspect]
     Active Substance: PALBOCICLIB
     Dosage: 75 MG, QD (CYCLIC, 3 WEEKS OUT OF 4)
     Route: 048
     Dates: end: 20210427
  4. INNOHEP [Concomitant]
     Active Substance: TINZAPARIN SODIUM
     Indication: Pulmonary embolism
     Dosage: 10000 IU, (1 INJECTION AT 10 AM DAILY)
     Route: 065
     Dates: start: 20201230
  5. BISOPROLOL [Concomitant]
     Active Substance: BISOPROLOL\BISOPROLOL FUMARATE
     Indication: Angina pectoris
     Dosage: 5 MG, (2 TABLETS IN THE MORNING)
     Route: 065
  6. CANDESARTAN [Concomitant]
     Active Substance: CANDESARTAN
     Indication: Angina pectoris
     Dosage: 16 MG (2 TABLETS IN THE MORNING)
     Route: 065
  7. KARDEGIC [Concomitant]
     Active Substance: ASPIRIN DL-LYSINE
     Indication: Angina pectoris
     Dosage: 160 MG, (IN THE MORNING)
     Route: 065
  8. NITROGLYCERIN [Concomitant]
     Active Substance: NITROGLYCERIN
     Indication: Angina pectoris
     Dosage: UNK, ( 5 MG/24 HOURS 1 PATCH AT 8 AM, 4 PM, AT MIDNIGHT)
     Route: 065
  9. DOLIPRANE [Concomitant]
     Active Substance: ACETAMINOPHEN
     Indication: Pain
     Dosage: 1 G, (EVERY 8 HOURS IN THE CASE OF PAIN)
     Route: 065
  10. PANTOPRAZOLE [Concomitant]
     Active Substance: PANTOPRAZOLE
     Indication: Product used for unknown indication
     Dosage: 20 MG, IN THE EVENING
     Route: 065
  11. MORPHINE [Concomitant]
     Active Substance: MORPHINE
     Indication: Product used for unknown indication
     Dosage: UNK
     Route: 065

REACTIONS (6)
  - General physical health deterioration [Recovered/Resolved]
  - Bone pain [Recovered/Resolved]
  - Acute kidney injury [Recovering/Resolving]
  - Haemoglobin decreased [Unknown]
  - Bone lesion [Unknown]
  - Urinary tract infection [Unknown]

NARRATIVE: CASE EVENT DATE: 20210428
